FAERS Safety Report 8357599-2 (Version None)
Quarter: 2012Q2

REPORT INFORMATION
  Report Type: 
  Country: None (occurrence: None)
  Receive Date: 20120514
  Receipt Date: 20120501
  Transmission Date: 20120825
  Serious: Yes (Life-Threatening, Hospitalization)
  Sender: FDA-Public Use
  Company Number: TR-UCBSA-056671

PATIENT
  Age: 20 Year
  Sex: Female
  Weight: 55 kg

DRUGS (2)
  1. XYZAL [Suspect]
     Dosage: TOOK 10 TABLETS
     Route: 048
     Dates: start: 20120413, end: 20120413
  2. RASTEL [Suspect]
     Dosage: DOSE: 25 MG ,TOOK 9 TABLETS
     Route: 048
     Dates: start: 20120413, end: 20120413

REACTIONS (1)
  - SUICIDE ATTEMPT [None]
